FAERS Safety Report 10877838 (Version 2)
Quarter: 2017Q1

REPORT INFORMATION
  Report Type: Spontaneous
  Country: US (occurrence: US)
  Receive Date: 20150302
  Receipt Date: 20170227
  Transmission Date: 20170428
  Serious: Yes (Other)
  Sender: FDA-Public Use
  Company Number: US-PFIZER INC-2015075467

PATIENT
  Age: 52 Year
  Sex: Female

DRUGS (3)
  1. XANAX [Suspect]
     Active Substance: ALPRAZOLAM
     Indication: NERVOUSNESS
     Dosage: 2 MG, 3X/DAY
     Route: 048
     Dates: start: 1985, end: 20150217
  2. XANAX [Suspect]
     Active Substance: ALPRAZOLAM
     Indication: DEPRESSION
  3. GEODON [Suspect]
     Active Substance: ZIPRASIDONE HYDROCHLORIDE\ZIPRASIDONE MESYLATE
     Dosage: UNK

REACTIONS (10)
  - Asthenia [Unknown]
  - Nightmare [Unknown]
  - Tremor [Unknown]
  - Withdrawal syndrome [Unknown]
  - Malaise [Unknown]
  - Drug dependence [Unknown]
  - Grief reaction [Unknown]
  - Apparent death [Unknown]
  - Pain [Not Recovered/Not Resolved]
  - Drug ineffective [Unknown]
